FAERS Safety Report 7308935-7 (Version None)
Quarter: 2011Q1

REPORT INFORMATION
  Report Type: 
  Country: None (occurrence: None)
  Receive Date: 20110223
  Receipt Date: 20110217
  Transmission Date: 20110831
  Serious: Yes (Other)
  Sender: FDA-Public Use
  Company Number: JP-PFIZER INC-2011034797

PATIENT
  Age: 82 Year
  Sex: Male

DRUGS (5)
  1. LYRICA [Suspect]
     Dosage: 75 MG, 2X/DAY
     Route: 048
     Dates: start: 20110204
  2. URSO 250 [Concomitant]
  3. TAMSULOSIN HCL [Concomitant]
  4. TAKEPRON [Concomitant]
  5. NIVADIL [Concomitant]

REACTIONS (3)
  - FALL [None]
  - LOSS OF CONTROL OF LEGS [None]
  - GAIT DISTURBANCE [None]
